FAERS Safety Report 19260347 (Version 1)
Quarter: 2021Q2

REPORT INFORMATION
  Report Type: Report from Study
  Country: US (occurrence: US)
  Receive Date: 20210514
  Receipt Date: 20210514
  Transmission Date: 20210717
  Serious: Yes (Hospitalization, Other)
  Sender: FDA-Public Use
  Company Number: US-GILEAD-2021-0530225

PATIENT
  Sex: Female

DRUGS (2)
  1. TADALAFIL. [Suspect]
     Active Substance: TADALAFIL
     Indication: PRODUCT USED FOR UNKNOWN INDICATION
     Route: 065
  2. AMBRISENTAN [Suspect]
     Active Substance: AMBRISENTAN
     Indication: PULMONARY HYPERTENSION
     Dosage: 10 MG, QD
     Route: 048
     Dates: start: 20110526

REACTIONS (13)
  - Dyspnoea [Unknown]
  - Tinnitus [Unknown]
  - Back pain [Unknown]
  - Transient ischaemic attack [Unknown]
  - Dizziness [Unknown]
  - Palpitations [Not Recovered/Not Resolved]
  - Pulmonary artery aneurysm [Not Recovered/Not Resolved]
  - Bone pain [Unknown]
  - Hot flush [Unknown]
  - Nasal congestion [Unknown]
  - Heart valve incompetence [Not Recovered/Not Resolved]
  - Myalgia [Unknown]
  - Diarrhoea [Not Recovered/Not Resolved]
